FAERS Safety Report 9297440 (Version 1)
Quarter: 2013Q2

REPORT INFORMATION
  Report Type: Spontaneous
  Country: US (occurrence: None)
  Receive Date: 20130517
  Receipt Date: 20130517
  Transmission Date: 20140414
  Serious: No
  Sender: FDA-Public Use
  Company Number: None

PATIENT
  Age: 41 Year
  Sex: Female
  Weight: 65.77 kg

DRUGS (1)
  1. CYMBALTA [Suspect]
     Indication: FIBROMYALGIA
     Dosage: 1 TABLET
     Route: 048
     Dates: start: 20120213, end: 20130516

REACTIONS (4)
  - Cerebral disorder [None]
  - Confusional state [None]
  - Irritability [None]
  - Emotional disorder [None]
